FAERS Safety Report 10773899 (Version 2)
Quarter: 2015Q2

REPORT INFORMATION
  Report Type: Other
  Country: GB (occurrence: GB)
  Receive Date: 20150208
  Receipt Date: 20150414
  Transmission Date: 20150821
  Serious: Yes (Other)
  Sender: FDA-Public Use
  Company Number: GB-MYLANLABS-2014SP000600

PATIENT

DRUGS (5)
  1. METHOTREXATE [Suspect]
     Active Substance: METHOTREXATE
     Indication: PRODUCT USED FOR UNKNOWN INDICATION
     Dosage: UNK
     Route: 048
  2. LIVIAL [Suspect]
     Active Substance: TIBOLONE
     Indication: VULVOVAGINAL DRYNESS
     Route: 048
  3. LIVIAL [Suspect]
     Active Substance: TIBOLONE
     Indication: DYSPAREUNIA
     Dosage: .5 DF, UNK
     Route: 048
  4. LIVIAL [Suspect]
     Active Substance: TIBOLONE
     Indication: ATROPHIC VULVOVAGINITIS
  5. VAGIFEM [Concomitant]
     Active Substance: ESTRADIOL
     Indication: PRODUCT USED FOR UNKNOWN INDICATION

REACTIONS (25)
  - Knee arthroplasty [Recovered/Resolved]
  - Temporal arteritis [Unknown]
  - Hyperkeratosis [Unknown]
  - Adverse drug reaction [Unknown]
  - Gait disturbance [Not Recovered/Not Resolved]
  - Tooth loss [Not Recovered/Not Resolved]
  - Rheumatoid arthritis [Not Recovered/Not Resolved]
  - Spinal deformity [Unknown]
  - Gingival recession [Not Recovered/Not Resolved]
  - Hip arthroplasty [Recovered/Resolved]
  - Osteoarthritis [Not Recovered/Not Resolved]
  - Headache [Unknown]
  - Body height decreased [Unknown]
  - Malaise [Unknown]
  - Resorption bone increased [Not Recovered/Not Resolved]
  - Myalgia [Not Recovered/Not Resolved]
  - Umbilical hernia [Unknown]
  - Gingival disorder [Unknown]
  - General physical health deterioration [Not Recovered/Not Resolved]
  - Bone disorder [Unknown]
  - Incorrect dose administered [Unknown]
  - Limb discomfort [Unknown]
  - Pain in extremity [Not Recovered/Not Resolved]
  - Eating disorder [Unknown]
  - Feeling abnormal [Unknown]

NARRATIVE: CASE EVENT DATE: 2000
